FAERS Safety Report 9852213 (Version 1)
Quarter: 2013Q4

REPORT INFORMATION
  Report Type: Spontaneous
  Country: US (occurrence: None)
  Receive Date: 20131127
  Receipt Date: 20131127
  Transmission Date: 20140711
  Serious: Yes (Other)
  Sender: FDA-Public Use
  Company Number: 223652LEO

PATIENT
  Age: 54 Year
  Sex: Female

DRUGS (1)
  1. PICATO [Suspect]
     Indication: SKIN EXFOLIATION
     Dosage: DAILY X 3 DAYS
     Route: 061
     Dates: start: 20130816

REACTIONS (6)
  - Application site dryness [None]
  - Off label use [None]
  - Application site erythema [None]
  - Application site scab [None]
  - Application site pruritus [None]
  - Application site exfoliation [None]
